FAERS Safety Report 9834499 (Version 1)
Quarter: 2014Q1

REPORT INFORMATION
  Report Type: Spontaneous
  Country: ES (occurrence: ES)
  Receive Date: 20140122
  Receipt Date: 20140122
  Transmission Date: 20141002
  Serious: Yes (Hospitalization, Other)
  Sender: FDA-Public Use
  Company Number: ES-B.I. PHARMACEUTICALS,INC./RIDGEFIELD-2014-BI-02266GD

PATIENT
  Age: 84 Year
  Sex: Female

DRUGS (5)
  1. PRADAXA [Suspect]
     Dosage: 150 MG
  2. ANGIOTENSIN II RECEPTOR ANTAGONISTS [Concomitant]
     Indication: HYPERTENSION
  3. BETA BLOCKERS [Concomitant]
     Indication: HYPERTENSION
  4. STATIN [Concomitant]
  5. FIBRATE [Concomitant]

REACTIONS (4)
  - Upper gastrointestinal haemorrhage [Recovered/Resolved]
  - General physical health deterioration [Unknown]
  - Urinary tract infection [Unknown]
  - Melaena [Recovered/Resolved]
